FAERS Safety Report 21341907 (Version 5)
Quarter: 2025Q3

REPORT INFORMATION
  Report Type: Spontaneous
  Country: US (occurrence: US)
  Receive Date: 20220916
  Receipt Date: 20250817
  Transmission Date: 20251021
  Serious: No
  Sender: SANOFI AVENTIS
  Company Number: US-SA-SAC20220915001114

PATIENT
  Age: 67 Year
  Sex: Female

DRUGS (1)
  1. DUPIXENT [Suspect]
     Active Substance: DUPILUMAB
     Indication: Dermatitis atopic
     Dosage: 300 MG, QOW
     Route: 058
     Dates: start: 20220608

REACTIONS (8)
  - Skin discolouration [Unknown]
  - Dry skin [Recovered/Resolved]
  - Cough [Unknown]
  - Pyrexia [Unknown]
  - Eye infection [Unknown]
  - Eye discharge [Unknown]
  - Therapeutic response decreased [Unknown]
  - Poor quality product administered [Unknown]

NARRATIVE: CASE EVENT DATE: 20250801
